FAERS Safety Report 16325752 (Version 1)
Quarter: 2019Q2

REPORT INFORMATION
  Report Type: Spontaneous
  Country: US (occurrence: US)
  Receive Date: 20190517
  Receipt Date: 20190517
  Transmission Date: 20190711
  Serious: No
  Sender: FDA-Public Use
  Company Number: US-COLLEGIUM PHARMACEUTICAL, INC.-2019CGM00098

PATIENT
  Age: 65 Year
  Sex: Male
  Weight: 57.14 kg

DRUGS (10)
  1. XTAMPZA ER [Suspect]
     Active Substance: OXYCODONE
     Indication: DRUG DEPENDENCE
     Dosage: 36 MG, 1X/DAY
     Route: 048
     Dates: start: 20190221, end: 20190228
  2. XTAMPZA ER [Suspect]
     Active Substance: OXYCODONE
     Indication: DRUG DEPENDENCE
     Dosage: 27 MG, 2X/DAY EVERY 12 HOURS
     Route: 048
     Dates: start: 20190221, end: 20190228
  3. ACTIQ [Suspect]
     Active Substance: FENTANYL CITRATE
     Dosage: 1600 ?G EVERY 3 HOURS
     Dates: end: 2019
  4. OXYCONTIN [Suspect]
     Active Substance: OXYCODONE HYDROCHLORIDE
     Dosage: UNK
     Dates: end: 2019
  5. OXYCONTIN [Suspect]
     Active Substance: OXYCODONE HYDROCHLORIDE
  6. OXYCONTIN [Suspect]
     Active Substance: OXYCODONE HYDROCHLORIDE
  7. OXYCODONE [Suspect]
     Active Substance: OXYCODONE
     Dosage: 30 MG, 8X/DAY (EVERY 3 HOURS)
  8. OXYCONTIN [Suspect]
     Active Substance: OXYCODONE HYDROCHLORIDE
  9. ACTIQ [Suspect]
     Active Substance: FENTANYL CITRATE
     Dosage: 1600 ?G 10 TIMES PER DAY
     Dates: end: 2019
  10. OXYCODONE ER [Suspect]
     Active Substance: OXYCODONE

REACTIONS (5)
  - Intentional product misuse [Recovered/Resolved]
  - Drug ineffective for unapproved indication [Recovered/Resolved]
  - Inappropriate schedule of product administration [Recovered/Resolved]
  - Nausea [Not Recovered/Not Resolved]
  - Withdrawal syndrome [Not Recovered/Not Resolved]

NARRATIVE: CASE EVENT DATE: 201902
